FAERS Safety Report 19841496 (Version 1)
Quarter: 2021Q3

REPORT INFORMATION
  Report Type: Spontaneous
  Country: NL (occurrence: NL)
  Receive Date: 20210916
  Receipt Date: 20210916
  Transmission Date: 20211014
  Serious: Yes (Life-Threatening)
  Sender: FDA-Public Use
  Company Number: NL-TEVA-2021-NL-1951690

PATIENT
  Age: 28 Year
  Sex: Male
  Weight: 110 kg

DRUGS (2)
  1. CLOZAPINE TABLET 200MG / BRAND NAME NOT SPECIFIED [Suspect]
     Active Substance: CLOZAPINE
     Indication: SCHIZOPHRENIA
     Dosage: 1DD450MG
     Dates: start: 2019, end: 20210717
  2. ARIPIPRAZOL TABLET  2,5MG / BRAND NAME NOT SPECIFIED [Concomitant]
     Dosage: 2.5 MG

REACTIONS (5)
  - Malaise [Recovering/Resolving]
  - Myalgia [Recovered/Resolved]
  - Rhabdomyolysis [Recovering/Resolving]
  - Drug interaction [Unknown]
  - Fatigue [Recovering/Resolving]

NARRATIVE: CASE EVENT DATE: 20210717
